FAERS Safety Report 21162463 (Version 1)
Quarter: 2022Q3

REPORT INFORMATION
  Report Type: Spontaneous
  Country: US (occurrence: None)
  Receive Date: 20220802
  Receipt Date: 20220802
  Transmission Date: 20221027
  Serious: Yes (Death)
  Sender: FDA-Public Use
  Company Number: None

PATIENT
  Age: 53 Year
  Sex: Female
  Weight: 79.54 kg

DRUGS (2)
  1. ROCEPHIN [Suspect]
     Active Substance: CEFTRIAXONE SODIUM
     Indication: Chronic obstructive pulmonary disease
     Dosage: OTHER FREQUENCY : ONCE;?
     Route: 042
     Dates: start: 20220515, end: 20220515
  2. SODIUM CHLORIDE [Suspect]
     Active Substance: SODIUM CHLORIDE
     Indication: Chronic obstructive pulmonary disease
     Dosage: OTHER FREQUENCY : ONCE;?
     Route: 042
     Dates: start: 20220515, end: 20220515

REACTIONS (4)
  - Brain injury [None]
  - Burning sensation [None]
  - Presyncope [None]
  - Unresponsive to stimuli [None]

NARRATIVE: CASE EVENT DATE: 20220515
